FAERS Safety Report 13627446 (Version 1)
Quarter: 2017Q2

REPORT INFORMATION
  Report Type: Spontaneous
  Country: US (occurrence: US)
  Receive Date: 20170531
  Receipt Date: 20170531
  Transmission Date: 20170830
  Serious: Yes (Hospitalization)
  Sender: FDA-Public Use
  Company Number: US-ASTELLAS-1493732

PATIENT
  Sex: Female

DRUGS (3)
  1. CEFALEXIN [Concomitant]
     Active Substance: CEPHALEXIN
  2. TARCEVA [Suspect]
     Active Substance: ERLOTINIB HYDROCHLORIDE
     Indication: LUNG NEOPLASM MALIGNANT
     Route: 048
     Dates: start: 20141111
  3. TARCEVA [Suspect]
     Active Substance: ERLOTINIB HYDROCHLORIDE
     Indication: MALIGNANT PLEURAL EFFUSION

REACTIONS (12)
  - Alopecia [Unknown]
  - Abdominal pain upper [Unknown]
  - Staphylococcal infection [Unknown]
  - Gingival bleeding [Not Recovered/Not Resolved]
  - Abdominal distension [Unknown]
  - Rash erythematous [Unknown]
  - Rash [Unknown]
  - Arthritis [Unknown]
  - Rhinitis [Unknown]
  - Joint stiffness [Unknown]
  - Dysgeusia [Unknown]
  - Arthralgia [Unknown]
